FAERS Safety Report 4296132-1 (Version None)
Quarter: 2004Q1

REPORT INFORMATION
  Report Type: 
  Country: None (occurrence: None)
  Receive Date: 20040217
  Receipt Date: 20030822
  Transmission Date: 20041129
  Serious: No
  Sender: FDA-Public Use
  Company Number: US-GLAXOSMITHKLINE-A0423113A

PATIENT
  Sex: Female

DRUGS (4)
  1. LAMICTAL [Suspect]
     Dosage: 150MG TWICE PER DAY
     Route: 048
     Dates: start: 20030301
  2. DIFLUCAN [Concomitant]
  3. MULTI-VITAMIN [Concomitant]
  4. FOLIC ACID [Concomitant]

REACTIONS (2)
  - HYPERHIDROSIS [None]
  - VAGINITIS [None]
